FAERS Safety Report 7341900-2 (Version None)
Quarter: 2011Q1

REPORT INFORMATION
  Report Type: 
  Country: None (occurrence: None)
  Receive Date: 20110309
  Receipt Date: 20110301
  Transmission Date: 20110831
  Serious: Yes (Other)
  Sender: FDA-Public Use
  Company Number: US-ALLERGAN-1102941US

PATIENT
  Age: 29 Year
  Sex: Female

DRUGS (1)
  1. BOTOX COSMETIC [Suspect]
     Indication: MUSCLE HYPERTROPHY
     Dosage: UNK
     Dates: start: 20101018, end: 20101018

REACTIONS (19)
  - TREMOR [None]
  - EYE IRRITATION [None]
  - CHILLS [None]
  - MUSCLE SPASMS [None]
  - EYE DISCHARGE [None]
  - PHOTOPHOBIA [None]
  - HEADACHE [None]
  - ANXIETY [None]
  - OCULAR HYPERAEMIA [None]
  - TACHYCARDIA [None]
  - PALPITATIONS [None]
  - PARAESTHESIA [None]
  - VISION BLURRED [None]
  - HALO VISION [None]
  - HYPOAESTHESIA [None]
  - MUSCLE TIGHTNESS [None]
  - HAEMATOCHEZIA [None]
  - DYSPNOEA [None]
  - PYREXIA [None]
